FAERS Safety Report 7999715-8 (Version None)
Quarter: 2011Q4

REPORT INFORMATION
  Report Type: 
  Country: None (occurrence: None)
  Receive Date: 20111221
  Receipt Date: 20111208
  Transmission Date: 20120403
  Serious: Yes (Disabling)
  Sender: FDA-Public Use
  Company Number: GR-MYLANLABS-2011S1025589

PATIENT
  Age: 56 Year
  Sex: Male
  Weight: 92 kg

DRUGS (1)
  1. LEVOFLOXACIN [Suspect]
     Indication: PROSTATITIS
     Route: 065

REACTIONS (2)
  - PERIPHERAL SENSORY NEUROPATHY [None]
  - PERONEAL MUSCULAR ATROPHY [None]
